FAERS Safety Report 10385925 (Version 1)
Quarter: 2014Q3

REPORT INFORMATION
  Report Type: Spontaneous
  Country: JP (occurrence: None)
  Receive Date: 20140812
  Receipt Date: 20140812
  Transmission Date: 20150326
  Serious: Yes (Hospitalization)
  Sender: FDA-Public Use
  Company Number: FK201403224

PATIENT
  Age: 11 Year
  Sex: Male

DRUGS (5)
  1. IFOSFAMIDE (IFOSFAMIDE) (IFOSFAMIDE) [Suspect]
     Active Substance: IFOSFAMIDE
     Indication: OSTEOSARCOMA
  2. METHOTREXATE (METHOTREXATE) (METHOTREXATE) [Suspect]
     Active Substance: METHOTREXATE
     Indication: OSTEOSARCOMA
  3. DOXORUBICIN (DOXORUBICIN) [Suspect]
     Active Substance: DOXORUBICIN
     Indication: OSTEOSARCOMA
  4. PIRARUBICIN (PIRARUBICIN) (PIRARUBICIN) [Suspect]
     Active Substance: PIRARUBICIN
     Indication: OSTEOSARCOMA
  5. CISPLATIN (CISPLATIN) (CISPLATIN) [Suspect]
     Active Substance: CISPLATIN
     Indication: OSTEOSARCOMA

REACTIONS (6)
  - Osteosarcoma [None]
  - Myelodysplastic syndrome [None]
  - Deafness [None]
  - Cardiac disorder [None]
  - Cardiotoxicity [None]
  - Stem cell transplant [None]
